FAERS Safety Report 8909428 (Version 1)
Quarter: 2012Q4

REPORT INFORMATION
  Report Type: Spontaneous
  Country: GB (occurrence: None)
  Receive Date: 20121109
  Receipt Date: 20121109
  Transmission Date: 20130627
  Serious: Yes (Other)
  Sender: FDA-Public Use
  Company Number: 1472561

PATIENT
  Age: 62 Year
  Sex: Female

DRUGS (4)
  1. CALCIUM FOLINATE [Suspect]
     Indication: METASTATIC COLORECTAL CANCER
  2. IRINOTECAN HYDROCHLORIDE [Suspect]
     Indication: METASTATIC COLORECTAL CANCER
  3. FLUOROURACIL [Suspect]
     Indication: METASTATIC COLORECTAL CANCER
  4. ELOXATIN [Suspect]
     Indication: METASTATIC COLORECTAL CANCER

REACTIONS (8)
  - Neuropathy peripheral [None]
  - Thrombocytopenia [None]
  - Device related infection [None]
  - Diarrhoea [None]
  - Stomatitis [None]
  - Palmar-plantar erythrodysaesthesia syndrome [None]
  - Cellulitis [None]
  - Drug hypersensitivity [None]
